FAERS Safety Report 14684324 (Version 1)
Quarter: 2018Q1

REPORT INFORMATION
  Report Type: Spontaneous
  Country: US (occurrence: US)
  Receive Date: 20180327
  Receipt Date: 20180327
  Transmission Date: 20180509
  Serious: Yes (Other)
  Sender: FDA-Public Use
  Company Number: US-AMNEAL PHARMACEUTICALS-2018AMN00144

PATIENT
  Sex: Male
  Weight: 95.24 kg

DRUGS (9)
  1. DEXILANT [Concomitant]
     Active Substance: DEXLANSOPRAZOLE
  2. HYDRALAZINE [Concomitant]
     Active Substance: HYDRALAZINE HYDROCHLORIDE
  3. CRESTOR [Concomitant]
     Active Substance: ROSUVASTATIN CALCIUM
  4. METORPOLOL [Concomitant]
     Active Substance: METOPROLOL
  5. MECLIZINE HYDROCHLORIDE. [Suspect]
     Active Substance: MECLIZINE HYDROCHLORIDE
     Indication: VERTIGO
     Dosage: 25 TABLETS, 3X/DAY
     Dates: start: 20180213
  6. ASPIRIN. [Concomitant]
     Active Substance: ASPIRIN
  7. RANEXA [Concomitant]
     Active Substance: RANOLAZINE
  8. ELIQUIS [Concomitant]
     Active Substance: APIXABAN
  9. DOXAZOSINE MESYLATE [Concomitant]

REACTIONS (1)
  - Generalised tonic-clonic seizure [Recovered/Resolved]
